FAERS Safety Report 15330798 (Version 1)
Quarter: 2018Q3

REPORT INFORMATION
  Report Type: Spontaneous
  Country: GB (occurrence: GB)
  Receive Date: 20180829
  Receipt Date: 20180829
  Transmission Date: 20181010
  Serious: Yes (Hospitalization)
  Sender: FDA-Public Use
  Company Number: GB-ALLERGAN-1839205US

PATIENT

DRUGS (2)
  1. BOTOX [Suspect]
     Active Substance: ONABOTULINUMTOXINA
     Dosage: UNK UNK, SINGLE
     Route: 065
     Dates: start: 201710, end: 201710
  2. BOTOX [Suspect]
     Active Substance: ONABOTULINUMTOXINA
     Indication: HYPERTONIC BLADDER
     Dosage: 200 UNITS, SINGLE
     Route: 065
     Dates: start: 20170418, end: 20170418

REACTIONS (6)
  - Asthenia [Unknown]
  - Dyspnoea [Unknown]
  - Muscular weakness [Unknown]
  - Systemic toxicity [Unknown]
  - Off label use [Unknown]
  - Drug effect incomplete [Unknown]
